FAERS Safety Report 5964956-8 (Version None)
Quarter: 2008Q4

REPORT INFORMATION
  Report Type: 
  Country: None (occurrence: None)
  Receive Date: 20081124
  Receipt Date: 20081124
  Transmission Date: 20090506
  Serious: Yes (Life-Threatening, Hospitalization)
  Sender: FDA-Public Use
  Company Number: None

PATIENT
  Age: 50 Year
  Sex: Male
  Weight: 122.4712 kg

DRUGS (1)
  1. LAMICTAL [Suspect]
     Indication: MOOD SWINGS
     Dosage: 25 MG TWICE PER DAY PO
     Route: 048
     Dates: start: 20071011, end: 20080911

REACTIONS (1)
  - ANAPHYLACTIC REACTION [None]
